FAERS Safety Report 21510530 (Version 1)
Quarter: 2022Q4

REPORT INFORMATION
  Report Type: Report from Study
  Country: US (occurrence: US)
  Receive Date: 20221026
  Receipt Date: 20221026
  Transmission Date: 20230113
  Serious: Yes (Other)
  Sender: FDA-Public Use
  Company Number: US-JAZZ-2021-US-025564

PATIENT
  Age: 47 Year
  Sex: Female

DRUGS (22)
  1. XYREM [Suspect]
     Active Substance: SODIUM OXYBATE
     Indication: Hypersomnia
     Dosage: 2.25 GRAM, BID
     Route: 048
     Dates: start: 201902, end: 201902
  2. XYREM [Suspect]
     Active Substance: SODIUM OXYBATE
     Dosage: DOSE ADJUSTMENT
     Route: 048
     Dates: start: 201902, end: 202001
  3. XYREM [Suspect]
     Active Substance: SODIUM OXYBATE
     Dosage: 3.75 GRAM, BID
     Route: 048
     Dates: start: 202002
  4. FLONASE ALLERGY RELIEF [Concomitant]
     Active Substance: FLUTICASONE PROPIONATE
     Dosage: 0000
     Dates: start: 20190531
  5. SCOPOLAMINE N-OXIDE [Concomitant]
     Active Substance: SCOPOLAMINE N-OXIDE
     Dosage: 0000
     Dates: start: 20210914
  6. KETOCONAZOLE [Concomitant]
     Active Substance: KETOCONAZOLE
     Dosage: 0000
     Dates: start: 20211117
  7. FLUOCINONIDE [Concomitant]
     Active Substance: FLUOCINONIDE
     Dosage: 0000
     Dates: start: 20211117
  8. AMINO ACIDS, SOURCE UNSPECIFIED [Concomitant]
     Active Substance: AMINO ACIDS, SOURCE UNSPECIFIED
     Indication: Product used for unknown indication
     Dosage: UNK
  9. TAURIN BIOS [Concomitant]
     Indication: Product used for unknown indication
     Dosage: UNK
  10. GLUTAMINE [Concomitant]
     Active Substance: GLUTAMINE
     Indication: Product used for unknown indication
     Dosage: UNK
  11. GLYCINE [Concomitant]
     Active Substance: GLYCINE
     Indication: Product used for unknown indication
     Dosage: UNK
  12. VITAMIN K [Concomitant]
     Active Substance: PHYTONADIONE
     Indication: Product used for unknown indication
     Dosage: UNK
  13. CHLORELLA ALGEN [Concomitant]
     Indication: Product used for unknown indication
     Dosage: UNK
  14. TYROSINE [Concomitant]
     Active Substance: TYROSINE
     Indication: Product used for unknown indication
     Dosage: UNK
  15. L-CETRIZET [Concomitant]
     Indication: Product used for unknown indication
     Dosage: UNK
  16. QUERCETIN [Concomitant]
     Active Substance: QUERCETIN
     Indication: Product used for unknown indication
     Dosage: UNK
  17. FLAXSEED [Concomitant]
     Active Substance: FLAX SEED
     Indication: Product used for unknown indication
     Dosage: UNK
  18. L LYSINE [LYSINE HYDROCHLORIDE] [Concomitant]
     Indication: Product used for unknown indication
     Dosage: UNK
  19. BETAMETHASONE [Concomitant]
     Active Substance: BETAMETHASONE
     Indication: Product used for unknown indication
     Dosage: UNK
  20. BETA CAROTENE AND LYCOPENE [Concomitant]
     Indication: Product used for unknown indication
     Dosage: UNK
  21. COLLAGEN + VITAMIN C [Concomitant]
     Dosage: UNK
     Dates: start: 20220630
  22. CITRULLINE [Concomitant]
     Active Substance: CITRULLINE
     Dosage: UNK
     Dates: start: 20220408

REACTIONS (5)
  - Coeliac artery compression syndrome [Unknown]
  - Hepatic steatosis [Unknown]
  - Urticaria [Unknown]
  - Abdominal distension [Unknown]
  - Platelet count increased [Unknown]

NARRATIVE: CASE EVENT DATE: 20220926
